FAERS Safety Report 4463173-0 (Version None)
Quarter: 2004Q3

REPORT INFORMATION
  Report Type: 
  Country: None (occurrence: None)
  Receive Date: 20040930
  Receipt Date: 20040923
  Transmission Date: 20050211
  Serious: Yes (Hospitalization)
  Sender: FDA-Public Use
  Company Number: US-BRISTOL-MYERS SQUIBB COMPANY-12711594

PATIENT
  Age: 79 Year
  Sex: Male
  Weight: 75 kg

DRUGS (10)
  1. TEQUIN [Suspect]
     Indication: OSTEOMYELITIS
     Dates: start: 20040803
  2. DIOVAN [Concomitant]
  3. LASIX [Concomitant]
  4. LOPRESSOR [Concomitant]
  5. PROSCAR [Concomitant]
  6. LIPITOR [Concomitant]
  7. AVANDIA [Concomitant]
  8. ARICEPT [Concomitant]
  9. GLYBURIDE [Concomitant]
  10. INSULIN [Concomitant]

REACTIONS (2)
  - DIABETES MELLITUS [None]
  - HYPERGLYCAEMIA [None]
